FAERS Safety Report 25640423 (Version 1)
Quarter: 2025Q3

REPORT INFORMATION
  Report Type: Spontaneous
  Country: US (occurrence: US)
  Receive Date: 20250804
  Receipt Date: 20250804
  Transmission Date: 20251020
  Serious: Yes (Other)
  Sender: BAUSCH AND LOMB
  Company Number: US-BAUSCH-BH-2025-015589

PATIENT
  Sex: Female

DRUGS (1)
  1. XIFAXAN [Suspect]
     Active Substance: RIFAXIMIN
     Indication: Product used for unknown indication

REACTIONS (4)
  - Gastrointestinal tube insertion [Unknown]
  - Nausea [Unknown]
  - Abdominal pain [Unknown]
  - Wrong technique in product usage process [Unknown]
